FAERS Safety Report 8787501 (Version 2)
Quarter: 2013Q1

REPORT INFORMATION
  Report Type: Report from Study
  Country: US (occurrence: US)
  Receive Date: 20120914
  Receipt Date: 20130124
  Transmission Date: 20140127
  Serious: No
  Sender: FDA-Public Use
  Company Number: US-VERTEX PHARMACEUTICAL INC.-AE-2012-010941

PATIENT
  Age: 51 Year
  Sex: Male
  Weight: 84 kg

DRUGS (11)
  1. VX-950 (TELAPREVIR) [Suspect]
     Indication: HEPATITIS C
     Dosage: 750 MG, TID
     Route: 048
     Dates: start: 20120706
  2. PEGASYS [Suspect]
     Indication: HEPATITIS C
     Dosage: 180 ?G, QW
     Route: 058
     Dates: start: 20120502
  3. RIBASPHERE [Suspect]
     Indication: HEPATITIS C
     Dosage: 600 MG, BID
     Route: 048
     Dates: start: 20120502
  4. AMLODIPINE BESYLATE [Concomitant]
     Dosage: 10 MG, QD
     Route: 048
  5. MYCOPHENOLATE [Concomitant]
     Dosage: 1000 MG, BID
     Route: 048
  6. GENGRAF [Concomitant]
     Dosage: 75 MG, BID
     Route: 048
  7. NEORAL GELATIN CAPSULE [Concomitant]
     Dosage: 25 MG, UNK
  8. HYDROCHOLROTHIAZIDE [Concomitant]
     Dosage: 25 MG, UNK
  9. TACROLIMUS [Concomitant]
     Dosage: 0.5 MG, UNK
  10. TYLENOL [Concomitant]
     Dosage: 325 MG, UNK
  11. MULTIVITAMINS [Concomitant]

REACTIONS (2)
  - Alopecia [Not Recovered/Not Resolved]
  - Fatigue [Unknown]
